FAERS Safety Report 4382134-3 (Version None)
Quarter: 2004Q2

REPORT INFORMATION
  Report Type: 
  Country: None (occurrence: None)
  Receive Date: 20040617
  Receipt Date: 52000604
  Transmission Date: 20050107
  Serious: Yes (Disabling)
  Sender: FDA-Public Use
  Company Number: 339739

PATIENT
  Age: 62 Year
  Sex: Female
  Weight: 87.3 kg

DRUGS (1)
  1. XENICAL (ORLISTAT) 120 MG [Suspect]
     Indication: WEIGHT DECREASED
     Dosage: 3 PER DAY ORAL
     Route: 048
     Dates: start: 20030519, end: 20030602

REACTIONS (6)
  - ABDOMINAL PAIN [None]
  - DIARRHOEA [None]
  - DRUG HYPERSENSITIVITY [None]
  - PRURITUS [None]
  - RASH [None]
  - TEMPERATURE INTOLERANCE [None]
